FAERS Safety Report 6635095-8 (Version None)
Quarter: 2010Q1

REPORT INFORMATION
  Report Type: 
  Country: None (occurrence: None)
  Receive Date: 20100315
  Receipt Date: 20100303
  Transmission Date: 20100710
  Serious: Yes (Hospitalization)
  Sender: FDA-Public Use
  Company Number: PHHY2010US13051

PATIENT
  Sex: Female
  Weight: 86.8 kg

DRUGS (9)
  1. EXJADE [Suspect]
     Indication: SICKLE CELL ANAEMIA
     Dosage: 1500 MG DAILY
     Route: 048
     Dates: start: 20100208
  2. FOLIC ACID [Concomitant]
  3. WARFARIN SODIUM [Concomitant]
  4. GABAPENTIN [Concomitant]
  5. METOPROLOL [Concomitant]
  6. RANITIDINE [Concomitant]
  7. MORPHINE [Concomitant]
  8. PROMETHAZINE [Concomitant]
  9. HYDROXYUREA [Concomitant]

REACTIONS (3)
  - ABDOMINAL PAIN LOWER [None]
  - DIARRHOEA [None]
  - NAUSEA [None]
